FAERS Safety Report 19298698 (Version 26)
Quarter: 2023Q1

REPORT INFORMATION
  Report Type: Report from Study
  Country: GB (occurrence: GB)
  Receive Date: 20210525
  Receipt Date: 20230306
  Transmission Date: 20230418
  Serious: Yes (Hospitalization, Disabling)
  Sender: FDA-Public Use
  Company Number: GB-CELLTRION HEALTHCARE HUNGARY KFT-2020GB028028

PATIENT
  Age: 73 Year
  Sex: Male
  Weight: 100 kg

DRUGS (36)
  1. BENDAMUSTINE [Suspect]
     Active Substance: BENDAMUSTINE
     Indication: Mantle cell lymphoma
     Route: 041
     Dates: start: 20200309, end: 20200309
  2. BENDAMUSTINE [Suspect]
     Active Substance: BENDAMUSTINE
     Route: 041
     Dates: start: 20210309
  3. BENDAMUSTINE [Suspect]
     Active Substance: BENDAMUSTINE
     Route: 041
     Dates: start: 20200309
  4. BENDAMUSTINE [Suspect]
     Active Substance: BENDAMUSTINE
     Dosage: 1 DOSAGE FORM, 1 DF (DOSE FORM: 230)
     Route: 041
     Dates: start: 20200309, end: 20200309
  5. BENDAMUSTINE [Suspect]
     Active Substance: BENDAMUSTINE
     Route: 041
     Dates: start: 20200309
  6. BENDAMUSTINE [Suspect]
     Active Substance: BENDAMUSTINE
     Dosage: 4 DOSAGE FORM, QD
     Route: 042
     Dates: start: 20200309, end: 20200309
  7. BENDAMUSTINE [Suspect]
     Active Substance: BENDAMUSTINE
     Route: 041
     Dates: start: 20200309, end: 20200309
  8. BENDAMUSTINE [Suspect]
     Active Substance: BENDAMUSTINE
     Route: 041
     Dates: start: 20200309, end: 20200309
  9. BENDAMUSTINE [Suspect]
     Active Substance: BENDAMUSTINE
     Route: 041
     Dates: start: 20200309, end: 20200309
  10. BENDAMUSTINE [Suspect]
     Active Substance: BENDAMUSTINE
     Route: 042
     Dates: start: 20200309
  11. BENDAMUSTINE [Suspect]
     Active Substance: BENDAMUSTINE
     Dosage: UNK QD (1X/DAY (DOSAGE FORM: 201)?MOST RECENT DOSE : 09/MAR/2022
     Route: 042
     Dates: start: 20200309
  12. BENDAMUSTINE [Suspect]
     Active Substance: BENDAMUSTINE
     Route: 041
     Dates: start: 20200309, end: 20200309
  13. BENDAMUSTINE [Suspect]
     Active Substance: BENDAMUSTINE
     Route: 042
     Dates: start: 20210309, end: 20210309
  14. BENDAMUSTINE [Suspect]
     Active Substance: BENDAMUSTINE
     Route: 041
     Dates: end: 20200309
  15. BENDAMUSTINE [Suspect]
     Active Substance: BENDAMUSTINE
     Route: 042
  16. CYTARABINE [Suspect]
     Active Substance: CYTARABINE
     Indication: Mantle cell lymphoma
     Dosage: MOST RECENT DOSE ON 11/MAR/2020
     Route: 040
     Dates: start: 20200309, end: 20200311
  17. CYTARABINE [Suspect]
     Active Substance: CYTARABINE
     Dosage: MOST RECENT DOSE ON 11/MAR/2020?20 MG, QD, CUMULATIVE DOSE OF 1040MG
     Route: 040
     Dates: start: 20200115, end: 20200303
  18. CYTARABINE [Suspect]
     Active Substance: CYTARABINE
     Route: 041
     Dates: start: 20200311
  19. CYTARABINE [Suspect]
     Active Substance: CYTARABINE
     Route: 040
     Dates: start: 20200303
  20. CYTARABINE [Suspect]
     Active Substance: CYTARABINE
     Dosage: (ON 11 MAR2 020, HE RECEIVED MOST RECENT DOSE OF CYTARABINE PRIOR TO EVENT ONSET, DOSAGE)
     Route: 040
     Dates: start: 20210309, end: 20210311
  21. CYTARABINE [Suspect]
     Active Substance: CYTARABINE
     Dosage: 20 MG, QD (ON 11 MAR 2020
     Route: 040
     Dates: start: 20210303
  22. CYTARABINE [Suspect]
     Active Substance: CYTARABINE
     Route: 040
     Dates: start: 20200309
  23. CYTARABINE [Suspect]
     Active Substance: CYTARABINE
     Route: 040
     Dates: start: 20210309, end: 20210311
  24. CYTARABINE [Suspect]
     Active Substance: CYTARABINE
     Dosage: 20 MG, QD (ON 11 MAR2 020
     Route: 040
     Dates: start: 20200309, end: 20210311
  25. CYTARABINE [Suspect]
     Active Substance: CYTARABINE
     Route: 040
     Dates: start: 20210309
  26. CYTARABINE [Suspect]
     Active Substance: CYTARABINE
     Dosage: MOST RECENT DOSE ON 11/MAR/2020?20 MG, QD, CUMULATIVE DOSE OF 1040MG
     Route: 040
     Dates: start: 20200115, end: 20200303
  27. CYTARABINE [Suspect]
     Active Substance: CYTARABINE
     Route: 040
     Dates: start: 20200309, end: 20200311
  28. PARSACLISIB [Suspect]
     Active Substance: PARSACLISIB
     Indication: Mantle cell lymphoma
     Dosage: MOST RECENT DOSE RECEIVED ON 03-MAR-2020); 20 MG, QD (DOSE PRIOR TO THE SERIOUS ADVERSE EVENTS (SAES
     Route: 048
     Dates: start: 20200115, end: 20200303
  29. RITUXIMAB [Suspect]
     Active Substance: RITUXIMAB
     Indication: Mantle cell lymphoma
     Route: 041
     Dates: start: 20200309, end: 20200309
  30. RITUXIMAB [Suspect]
     Active Substance: RITUXIMAB
     Route: 041
     Dates: start: 20200303, end: 20200309
  31. MEROPENEM [Concomitant]
     Active Substance: MEROPENEM
     Indication: Decreased appetite
     Dates: start: 20200309
  32. MEROPENEM [Concomitant]
     Active Substance: MEROPENEM
     Indication: Cough
     Dates: start: 20200319
  33. MEROPENEM [Concomitant]
     Active Substance: MEROPENEM
     Indication: Malaise
     Dates: start: 20200319
  34. ACETAMINOPHEN [Concomitant]
     Active Substance: ACETAMINOPHEN
     Indication: Decreased appetite
     Dates: start: 20200309
  35. ACETAMINOPHEN [Concomitant]
     Active Substance: ACETAMINOPHEN
     Indication: Malaise
     Dates: start: 20200319
  36. ACETAMINOPHEN [Concomitant]
     Active Substance: ACETAMINOPHEN
     Indication: Cough

REACTIONS (4)
  - Neutropenic sepsis [Recovered/Resolved]
  - Bronchitis [Recovered/Resolved]
  - Pneumonia [Recovered/Resolved]
  - Neutrophil count decreased [Recovered/Resolved]

NARRATIVE: CASE EVENT DATE: 20200321
